FAERS Safety Report 4592504-6 (Version None)
Quarter: 2005Q1

REPORT INFORMATION
  Report Type: 
  Country: None (occurrence: None)
  Receive Date: 20050222
  Receipt Date: 20050207
  Transmission Date: 20050727
  Serious: Yes (Death)
  Sender: FDA-Public Use
  Company Number: 8008866

PATIENT
  Age: 71 Year
  Sex: Male

DRUGS (7)
  1. KEPPRA [Suspect]
     Indication: EPILEPSY
     Dosage: 500 MG /D PO
     Route: 048
     Dates: start: 20030815, end: 20030929
  2. KEPPRA [Suspect]
     Indication: EPILEPSY
     Dosage: 1500 MG /D PO
     Route: 048
     Dates: start: 20030930, end: 20031103
  3. KEPPRA [Suspect]
     Indication: EPILEPSY
     Dosage: 3000 MG /D PO
     Route: 048
     Dates: start: 20031104, end: 20040210
  4. KEPPRA [Suspect]
     Indication: EPILEPSY
     Dosage: 4000 MG /D PO
     Route: 048
     Dates: start: 20040211
  5. VALPROATE SODIUM [Concomitant]
  6. TOPIRAMATE [Concomitant]
  7. CLEXANE [Concomitant]

REACTIONS (1)
  - MYOCARDIAL INFARCTION [None]
